FAERS Safety Report 9153082 (Version 5)
Quarter: 2013Q2

REPORT INFORMATION
  Report Type: Spontaneous
  Country: US (occurrence: US)
  Receive Date: 20130311
  Receipt Date: 20130510
  Transmission Date: 20140414
  Serious: Yes (Disabling)
  Sender: FDA-Public Use
  Company Number: US-009507513-1303USA002837

PATIENT
  Age: 30 Year
  Sex: Female
  Weight: 58.5 kg

DRUGS (1)
  1. NUVARING [Suspect]
     Indication: CONTRACEPTION
     Dosage: NEW RING ONCE MONTHLY
     Route: 067
     Dates: start: 201205, end: 201302

REACTIONS (4)
  - Blindness unilateral [Recovered/Resolved]
  - Aura [Recovered/Resolved]
  - Migraine [Recovered/Resolved]
  - Migraine with aura [Recovered/Resolved]
